FAERS Safety Report 7922600-4 (Version None)
Quarter: 2011Q4

REPORT INFORMATION
  Report Type: 
  Country: None (occurrence: None)
  Receive Date: 20111117
  Receipt Date: 20110107
  Transmission Date: 20120403
  Serious: No
  Sender: FDA-Public Use
  Company Number: US-ALLERGAN-1015976US

PATIENT
  Age: 72 Year
  Sex: Male

DRUGS (6)
  1. LISINOPRIL [Concomitant]
  2. HYDROCHLOROTHIAZIDE [Concomitant]
  3. NAPROXEN [Concomitant]
  4. FINASTERIDE [Concomitant]
  5. SYMBICORT [Concomitant]
  6. COMBIGAN [Suspect]
     Indication: INTRAOCULAR PRESSURE INCREASED
     Dosage: 1 GTT, BID
     Route: 047
     Dates: start: 20100201, end: 20100909

REACTIONS (4)
  - EYE SWELLING [None]
  - LACRIMATION INCREASED [None]
  - EYE PRURITUS [None]
  - DRUG INEFFECTIVE [None]
